FAERS Safety Report 15222129 (Version 1)
Quarter: 2018Q3

REPORT INFORMATION
  Report Type: Spontaneous
  Country: IT (occurrence: IT)
  Receive Date: 20180731
  Receipt Date: 20180731
  Transmission Date: 20181010
  Serious: Yes (Other)
  Sender: FDA-Public Use
  Company Number: PHHY2018IT058548

PATIENT
  Age: 26 Year
  Sex: Male
  Weight: 63 kg

DRUGS (6)
  1. RISPERIDONE. [Suspect]
     Active Substance: RISPERIDONE
     Indication: PSYCHOTIC DISORDER
     Dosage: 2 MG, QD
     Route: 048
     Dates: start: 201704
  2. PROMAZINE [Concomitant]
     Active Substance: PROMAZINE
     Indication: SEDATIVE THERAPY
     Dosage: 10 GTT, QD
     Route: 065
     Dates: start: 201704
  3. PREGABALIN. [Concomitant]
     Active Substance: PREGABALIN
     Indication: PRODUCT USED FOR UNKNOWN INDICATION
     Dosage: 75 MG, UNK
     Route: 065
  4. LORAZEPAM. [Concomitant]
     Active Substance: LORAZEPAM
     Indication: ANXIETY
     Dosage: 2 MG, UNK
     Route: 065
     Dates: start: 201708
  5. ZOLPIDEM [Concomitant]
     Active Substance: ZOLPIDEM\ZOLPIDEM TARTRATE
     Indication: PRODUCT USED FOR UNKNOWN INDICATION
     Dosage: 1 DF, QD
     Route: 065
     Dates: start: 201704
  6. ALPRAZOLAM. [Concomitant]
     Active Substance: ALPRAZOLAM
     Indication: ANXIETY
     Dosage: 0.5 MG, UNK
     Route: 065

REACTIONS (2)
  - Product quality issue [Unknown]
  - Psychotic symptom [Not Recovered/Not Resolved]

NARRATIVE: CASE EVENT DATE: 2018
